FAERS Safety Report 9449403 (Version 2)
Quarter: 2013Q3

REPORT INFORMATION
  Report Type: Report from Study
  Country: US (occurrence: US)
  Receive Date: 20130809
  Receipt Date: 20130819
  Transmission Date: 20140515
  Serious: Yes (Hospitalization, Other)
  Sender: FDA-Public Use
  Company Number: US-AMGEN-USACT2013055497

PATIENT
  Age: 72 Year
  Sex: Female
  Weight: 89.09 kg

DRUGS (10)
  1. DARBEPOETIN ALFA [Suspect]
     Indication: NEPHROGENIC ANAEMIA
     Dosage: UNK
     Route: 058
     Dates: start: 20121016
  2. FLUOROMETHOLONE [Concomitant]
     Dosage: UNK
     Dates: start: 20120302
  3. ACETAMINOPHEN [Concomitant]
     Dosage: UNK
     Dates: start: 20110320
  4. AMLODIPINE BESYLATE [Concomitant]
     Dosage: UNK
     Dates: start: 20090201
  5. DOCUSATE SODIUM [Concomitant]
     Dosage: UNK
     Dates: start: 20101201
  6. MULTIVITAMINS, PLAIN [Concomitant]
     Dosage: UNK
     Dates: start: 20120401
  7. VITAMIN D                          /00107901/ [Concomitant]
     Dosage: UNK
     Dates: start: 20090310
  8. DIOVAN [Concomitant]
     Dosage: UNK
     Dates: start: 20090310
  9. PANTOPRAZOLE [Concomitant]
     Dosage: UNK
     Dates: start: 20100401
  10. FERROUS FUMARATE [Concomitant]
     Dosage: 18 MG, UNK
     Route: 048
     Dates: start: 20120401

REACTIONS (1)
  - Dyspnoea [Unknown]
